FAERS Safety Report 7297690-5 (Version None)
Quarter: 2011Q1

REPORT INFORMATION
  Report Type: 
  Country: None (occurrence: None)
  Receive Date: 20110216
  Receipt Date: 20110210
  Transmission Date: 20110831
  Serious: Yes (Hospitalization)
  Sender: FDA-Public Use
  Company Number: DE-BRISTOL-MYERS SQUIBB COMPANY-15543606

PATIENT
  Age: 54 Year
  Sex: Male
  Weight: 88 kg

DRUGS (8)
  1. ALIMTA [Suspect]
     Indication: NON-SMALL CELL LUNG CANCER
     Dosage: LAST DOSE ON 26JAN11,NO OF CYCLE:4/DAY 8
     Route: 065
     Dates: start: 20101125
  2. GLIMEPIRIDE [Concomitant]
     Dates: start: 20110103
  3. URAPIDIL [Concomitant]
     Dates: start: 20101125, end: 20110130
  4. PANTOPRAZOLE [Concomitant]
     Dates: start: 20101124
  5. CARVEDILOL [Concomitant]
     Dates: start: 20101125
  6. METAMIZOL [Concomitant]
     Dates: start: 20101124
  7. CISPLATIN [Suspect]
     Indication: NON-SMALL CELL LUNG CANCER
     Dosage: LAST DOSE ON 26JAN11,NO OF CYCLE:4/DAY 8
     Route: 065
     Dates: start: 20101125
  8. CANDESARTAN CILEXETIL [Concomitant]
     Dates: start: 20101125

REACTIONS (1)
  - HYPOTONIA [None]
